FAERS Safety Report 9452343 (Version 2)
Quarter: 2013Q3

REPORT INFORMATION
  Report Type: Spontaneous
  Country: FR (occurrence: FR)
  Receive Date: 20130812
  Receipt Date: 20130902
  Transmission Date: 20140515
  Serious: Yes (Life-Threatening, Hospitalization)
  Sender: FDA-Public Use
  Company Number: FR-ROCHE-1251688

PATIENT
  Age: 62 Year
  Sex: Male
  Weight: 57 kg

DRUGS (1)
  1. AVASTIN [Suspect]
     Indication: LUNG CANCER METASTATIC
     Dosage: SIXTH CYCLE
     Route: 042
     Dates: start: 20120730, end: 20130506

REACTIONS (3)
  - Intestinal perforation [Not Recovered/Not Resolved]
  - Vasculitis [Not Recovered/Not Resolved]
  - Weight decreased [Unknown]
